FAERS Safety Report 8722252 (Version 2)
Quarter: 2012Q4

REPORT INFORMATION
  Report Type: Report from Study
  Country: US (occurrence: US)
  Receive Date: 20120814
  Receipt Date: 20121121
  Transmission Date: 20130627
  Serious: Yes (Hospitalization)
  Sender: FDA-Public Use
  Company Number: US-JNJFOC-20120804448

PATIENT
  Age: 19 Year
  Sex: Female
  Weight: 55.5 kg

DRUGS (5)
  1. USTEKINUMAB [Suspect]
     Indication: CROHN^S DISEASE
     Route: 058
     Dates: start: 20111114
  2. PREDNISONE [Concomitant]
  3. METHOTREXATE [Concomitant]
  4. ANTIBIOTICS [Concomitant]
     Indication: IRRITABLE BOWEL SYNDROME
  5. PROBIOTICS [Concomitant]

REACTIONS (1)
  - Crohn^s disease [Not Recovered/Not Resolved]
